FAERS Safety Report 7311957-3 (Version None)
Quarter: 2011Q1

REPORT INFORMATION
  Report Type: 
  Country: None (occurrence: None)
  Receive Date: 20110224
  Receipt Date: 20110216
  Transmission Date: 20110831
  Serious: Yes (Hospitalization)
  Sender: FDA-Public Use
  Company Number: IT-ROCHE-645512

PATIENT
  Sex: Male
  Weight: 67 kg

DRUGS (6)
  1. BEVACIZUMAB [Suspect]
     Dosage: ROUTE: EV. LAST DOSE PRIOR TO SAE: 03 JUL 2009.
     Route: 042
     Dates: start: 20090522, end: 20090724
  2. OXALIPLATIN [Suspect]
     Dosage: PERMANENTLY DISCONTINUED
     Route: 042
     Dates: end: 20090728
  3. CAPECITABINE [Suspect]
     Dosage: FREQUENCY: D1 - 15, LAST DOSE PRIOR TO SAE: 03 JUL 2009.
     Route: 048
     Dates: start: 20090522, end: 20090724
  4. CAPECITABINE [Suspect]
     Dosage: PERMANENTLY DISCONTINUED
     Route: 048
     Dates: end: 20090728
  5. OXALIPLATIN [Suspect]
     Dosage: ROUTE: EV. LAST DOSE PRIOR TO SAE: 03 JULY 2009
     Route: 042
     Dates: start: 20090522, end: 20090724
  6. BEVACIZUMAB [Suspect]
     Dosage: PERMANENTLY DISCONTINUED.
     Route: 042
     Dates: end: 20090728

REACTIONS (7)
  - PULMONARY EMBOLISM [None]
  - SUBILEUS [None]
  - NAUSEA [None]
  - PERITONITIS [None]
  - RENAL FAILURE ACUTE [None]
  - ABSCESS [None]
  - PERFORMANCE STATUS DECREASED [None]
